FAERS Safety Report 7404783-8 (Version None)
Quarter: 2011Q1

REPORT INFORMATION
  Report Type: 
  Country: None (occurrence: None)
  Receive Date: 20110301
  Receipt Date: 20101207
  Transmission Date: 20110831
  Serious: Yes (Disabling, Other)
  Sender: FDA-Public Use
  Company Number: ALA_01446_2011

PATIENT
  Sex: Female

DRUGS (3)
  1. REGLAN [Suspect]
     Indication: NAUSEA
     Dosage: (DF ORAL)
     Route: 048
     Dates: start: 20040201, end: 20070601
  2. REGLAN [Suspect]
     Indication: GASTROINTESTINAL DISORDER
     Dosage: (DF ORAL)
     Route: 048
     Dates: start: 20040201, end: 20070601
  3. REGLAN [Suspect]
     Indication: GASTROOESOPHAGEAL REFLUX DISEASE
     Dosage: (DF ORAL)
     Route: 048
     Dates: start: 20040201, end: 20070601

REACTIONS (3)
  - TARDIVE DYSKINESIA [None]
  - CONVULSION [None]
  - INCORRECT DRUG ADMINISTRATION DURATION [None]
